FAERS Safety Report 5508499-4 (Version None)
Quarter: 2007Q4

REPORT INFORMATION
  Report Type: 
  Country: None (occurrence: None)
  Receive Date: 20071105
  Receipt Date: 20071031
  Transmission Date: 20080405
  Serious: Yes (Hospitalization)
  Sender: FDA-Public Use
  Company Number: 2007SP021047

PATIENT
  Age: 60 Year
  Sex: Female
  Weight: 63.5036 kg

DRUGS (9)
  1. PEG-INTRON [Suspect]
     Indication: HEPATITIS C
     Dosage: 30 MCG; QW; SC
     Route: 058
     Dates: start: 20070918, end: 20071013
  2. REBETOL [Suspect]
     Indication: HEPATITIS C
     Dosage: 600 MG; QD; PO
     Route: 048
     Dates: start: 20070918, end: 20071017
  3. PROCRIT [Suspect]
     Indication: ANAEMIA
     Dosage: 40000 IU; QW; SC
     Route: 058
     Dates: start: 20071009, end: 20071017
  4. LASIX [Concomitant]
  5. ALDACTONE [Concomitant]
  6. QUALAQUIN [Concomitant]
  7. ACIPHEX [Concomitant]
  8. CLONIPINE [Concomitant]
  9. MILK THISTLE [Concomitant]

REACTIONS (3)
  - ASCITES [None]
  - CITROBACTER INFECTION [None]
  - PERITONITIS BACTERIAL [None]
